FAERS Safety Report 7247058-2 (Version None)
Quarter: 2011Q1

REPORT INFORMATION
  Report Type: 
  Country: None (occurrence: None)
  Receive Date: 20110127
  Receipt Date: 20101214
  Transmission Date: 20110831
  Serious: Yes (Hospitalization, Other)
  Sender: FDA-Public Use
  Company Number: JP-BAYER-2010-003221

PATIENT
  Age: 74 Year
  Sex: Male

DRUGS (1)
  1. ASPIRIN [Suspect]
     Indication: MYOCARDIAL INFARCTION
     Route: 048

REACTIONS (3)
  - SUBARACHNOID HAEMORRHAGE [None]
  - CEREBROVASCULAR DISORDER [None]
  - RUPTURED CEREBRAL ANEURYSM [None]
